FAERS Safety Report 16012849 (Version 1)
Quarter: 2019Q1

REPORT INFORMATION
  Report Type: Spontaneous
  Country: US (occurrence: US)
  Receive Date: 20190227
  Receipt Date: 20190227
  Transmission Date: 20190418
  Serious: Yes (Other)
  Sender: FDA-Public Use
  Company Number: PHEH2019US008757

PATIENT
  Sex: Male

DRUGS (1)
  1. TASIGNA [Suspect]
     Active Substance: NILOTINIB
     Indication: CHRONIC MYELOID LEUKAEMIA
     Dosage: 150 MG, BID
     Route: 048
     Dates: start: 20150924

REACTIONS (10)
  - Anaemia [Unknown]
  - Erectile dysfunction [Unknown]
  - Oedema peripheral [Unknown]
  - Aortic stenosis [Unknown]
  - Chronic kidney disease [Unknown]
  - Coronary artery disease [Unknown]
  - Chronic kidney disease-mineral and bone disorder [Unknown]
  - Dyspnoea exertional [Unknown]
  - Bradycardia [Unknown]
  - Chest pain [Unknown]
